FAERS Safety Report 18071349 (Version 1)
Quarter: 2020Q3

REPORT INFORMATION
  Report Type: Spontaneous
  Country: US (occurrence: US)
  Receive Date: 20200727
  Receipt Date: 20200727
  Transmission Date: 20201103
  Serious: No
  Sender: FDA-Public Use
  Company Number: None

PATIENT
  Age: 35 Year
  Sex: Female

DRUGS (1)
  1. ASSURED INSTANT HAND SANITIZER WITH MOISTURIZERS ALOE VERA AND MOISTURIZERS [Suspect]
     Active Substance: ALCOHOL
     Indication: INFECTION PROPHYLAXIS
     Dosage: ?          QUANTITY:11.2 OUNCE(S);?
     Route: 061
     Dates: start: 20200401, end: 20200727

REACTIONS (1)
  - Dry skin [None]
